FAERS Safety Report 21488851 (Version 1)
Quarter: 2022Q4

REPORT INFORMATION
  Report Type: Spontaneous
  Country: US (occurrence: US)
  Receive Date: 20221021
  Receipt Date: 20221021
  Transmission Date: 20230112
  Serious: No
  Sender: FDA-Public Use
  Company Number: US-CELLTRION INC.-2022US003953

PATIENT

DRUGS (3)
  1. INFLECTRA [Suspect]
     Active Substance: INFLIXIMAB-DYYB
     Indication: Product used for unknown indication
     Dosage: 1100 MG, CYCLIC (EVERY 6 WEEKS)
     Route: 042
  2. INFLECTRA [Suspect]
     Active Substance: INFLIXIMAB-DYYB
     Dosage: 10 MG/KG
  3. INFLECTRA [Suspect]
     Active Substance: INFLIXIMAB-DYYB
     Dosage: 100MG/20ML; (99.5 KGS)PT-WT, INFUSE 10MG/KG OVER 2 HOURS; QUANTITY: 11 VIALS; REFILLS: 6

REACTIONS (4)
  - Product prescribing issue [Unknown]
  - Product prescribing issue [Unknown]
  - Product selection error [Unknown]
  - Overdose [Unknown]
